FAERS Safety Report 6436844-4 (Version None)
Quarter: 2009Q4

REPORT INFORMATION
  Report Type: 
  Country: None (occurrence: None)
  Receive Date: 20091111
  Receipt Date: 20090908
  Transmission Date: 20100525
  Serious: No
  Sender: FDA-Public Use
  Company Number: US-ALLERGAN-0912487US

PATIENT
  Age: 62 Year
  Sex: Male

DRUGS (2)
  1. SANCTURA XR [Suspect]
     Indication: HYPERTONIC BLADDER
     Dosage: 60 MG, QAM
     Route: 048
  2. SANCTURA XR [Suspect]
     Dosage: 60 MG, QAM
     Route: 048

REACTIONS (3)
  - DRUG ADMINISTRATION ERROR [None]
  - POLLAKIURIA [None]
  - THERAPEUTIC RESPONSE DECREASED [None]
